FAERS Safety Report 12849405 (Version 1)
Quarter: 2016Q4

REPORT INFORMATION
  Report Type: Spontaneous
  Country: MY (occurrence: MY)
  Receive Date: 20161014
  Receipt Date: 20161014
  Transmission Date: 20170207
  Serious: Yes (Other)
  Sender: FDA-Public Use
  Company Number: MY-009507513-1609MYS012677

PATIENT
  Age: 62 Year
  Sex: Male

DRUGS (6)
  1. POSACONAZOLE [Suspect]
     Active Substance: POSACONAZOLE
     Indication: MUCORMYCOSIS
     Dosage: 300 MG, QD (3 TABLETS IN ONE TIME)
     Route: 048
     Dates: start: 20160905, end: 2016
  2. POSACONAZOLE [Suspect]
     Active Substance: POSACONAZOLE
     Dosage: 300 MG, BID, DAY 1
     Route: 048
     Dates: start: 20160904, end: 20160904
  3. POSACONAZOLE [Suspect]
     Active Substance: POSACONAZOLE
     Indication: MUCORMYCOSIS
     Dosage: 200 MG, QID
     Route: 048
     Dates: start: 20160829, end: 20160903
  4. SIMVASTATIN. [Concomitant]
     Active Substance: SIMVASTATIN
     Indication: CEREBROVASCULAR ACCIDENT
     Dosage: 20 MG, QD
     Route: 048
     Dates: start: 20160509
  5. POSACONAZOLE [Suspect]
     Active Substance: POSACONAZOLE
     Dosage: 100 MG, TID (AT INTERVALS SEPARATED BY 60 MIN)
     Route: 048
     Dates: start: 2016
  6. ASPIRIN. [Concomitant]
     Active Substance: ASPIRIN
     Indication: CEREBROVASCULAR ACCIDENT
     Dosage: 150 MG, QD
     Route: 048
     Dates: start: 20160505

REACTIONS (6)
  - Dizziness [Recovered/Resolved]
  - Tremor [Recovered/Resolved]
  - Discomfort [Unknown]
  - Abasia [Unknown]
  - Gait disturbance [Unknown]
  - Product use issue [Unknown]

NARRATIVE: CASE EVENT DATE: 2016
